FAERS Safety Report 7087092-9 (Version None)
Quarter: 2010Q4

REPORT INFORMATION
  Report Type: 
  Country: None (occurrence: None)
  Receive Date: 20101106
  Receipt Date: 20101029
  Transmission Date: 20110411
  Serious: No
  Sender: FDA-Public Use
  Company Number: US-WYE-H18439610

PATIENT
  Age: 3 Year
  Sex: Female
  Weight: 13.62 kg

DRUGS (1)
  1. CHILDREN'S ADVIL [Suspect]
     Indication: PYREXIA
     Dosage: 1 TSP EVERY 5 HR;  CUMULATIVE DOSE TO EVENT: 5 TSP
     Route: 048
     Dates: start: 20101025, end: 20101025

REACTIONS (4)
  - ERYTHEMA [None]
  - HYPERSENSITIVITY [None]
  - INAPPROPRIATE SCHEDULE OF DRUG ADMINISTRATION [None]
  - URTICARIA [None]
